FAERS Safety Report 21458774 (Version 3)
Quarter: 2022Q4

REPORT INFORMATION
  Report Type: Spontaneous
  Country: US (occurrence: None)
  Receive Date: 20221014
  Receipt Date: 20221128
  Transmission Date: 20230113
  Serious: Yes (Other)
  Sender: FDA-Public Use
  Company Number: US-ROCHE-3196946

PATIENT
  Sex: Male

DRUGS (1)
  1. HEMLIBRA [Suspect]
     Active Substance: EMICIZUMAB-KXWH
     Indication: Factor VIII deficiency
     Dosage: HEMLIBRA 60MG/0.4 ML VIAL?MAINTAINANCE DOSE: INJECT HEMLIBRA 180MG, SUBCUTANEOUSLY INTO ABDOMEN, THI
     Route: 058

REACTIONS (3)
  - Renal haemorrhage [Unknown]
  - Haematuria [Unknown]
  - Renal vein compression [Unknown]
